FAERS Safety Report 18218506 (Version 2)
Quarter: 2020Q3

REPORT INFORMATION
  Report Type: Spontaneous
  Country: US (occurrence: US)
  Receive Date: 20200901
  Receipt Date: 20200903
  Transmission Date: 20201103
  Serious: Yes (Other)
  Sender: FDA-Public Use
  Company Number: US-PFIZER INC-2020334047

PATIENT
  Age: 71 Year
  Sex: Male
  Weight: 92.08 kg

DRUGS (2)
  1. VYNDAMAX [Suspect]
     Active Substance: TAFAMIDIS
     Indication: AMYLOIDOSIS
  2. VYNDAMAX [Suspect]
     Active Substance: TAFAMIDIS
     Indication: CARDIAC AMYLOIDOSIS
     Dosage: 61 MG, 1X/DAY
     Route: 048
     Dates: start: 202008, end: 20200826

REACTIONS (24)
  - Chromaturia [Unknown]
  - Somnolence [Unknown]
  - Asthenia [Unknown]
  - Pain [Unknown]
  - Visual impairment [Unknown]
  - Hereditary neuropathic amyloidosis [Unknown]
  - Insomnia [Unknown]
  - Neuralgia [Unknown]
  - Feeling abnormal [Unknown]
  - Movement disorder [Unknown]
  - Dizziness [Unknown]
  - Hypoacusis [Unknown]
  - Headache [Unknown]
  - Muscular weakness [Unknown]
  - Abdominal pain upper [Unknown]
  - Abdominal distension [Unknown]
  - Hyperhidrosis [Unknown]
  - Condition aggravated [Unknown]
  - Memory impairment [Unknown]
  - Balance disorder [Unknown]
  - Malaise [Unknown]
  - Drug ineffective [Unknown]
  - Burning sensation [Unknown]
  - Amnesia [Unknown]

NARRATIVE: CASE EVENT DATE: 20200827
